FAERS Safety Report 23801362 (Version 5)
Quarter: 2024Q3

REPORT INFORMATION
  Report Type: Spontaneous
  Country: US (occurrence: US)
  Receive Date: 20240430
  Receipt Date: 20240926
  Transmission Date: 20241016
  Serious: No
  Sender: SANOFI AVENTIS
  Company Number: US-SA-SAC20240429000476

PATIENT
  Age: 9 Year
  Sex: Male

DRUGS (8)
  1. ALPROLIX [Suspect]
     Active Substance: EFTRENONACOG ALFA
     Indication: Haemorrhage prophylaxis
     Dosage: 2800 U, QW
     Route: 042
  2. ALPROLIX [Suspect]
     Active Substance: EFTRENONACOG ALFA
     Indication: Haemorrhage prophylaxis
     Dosage: 2800 U, QW
     Route: 042
  3. ALPROLIX [Suspect]
     Active Substance: EFTRENONACOG ALFA
     Dosage: 2800 U, PRN
     Route: 042
  4. ALPROLIX [Suspect]
     Active Substance: EFTRENONACOG ALFA
     Dosage: 2800 U, PRN
     Route: 042
  5. ALPROLIX [Suspect]
     Active Substance: EFTRENONACOG ALFA
     Dosage: 2900 U,(+/-10%) QW (FOR PROPHYLAXIS)
     Route: 042
  6. ALPROLIX [Suspect]
     Active Substance: EFTRENONACOG ALFA
     Dosage: 2900 U,(+/-10%) QW (FOR PROPHYLAXIS)
     Route: 042
  7. ALPROLIX [Suspect]
     Active Substance: EFTRENONACOG ALFA
     Dosage: 2900 U,(+/-10%) QW (AS NEEDED FOR BLEEDING EVENTS FOR UPTO 2)
     Route: 042
  8. ALPROLIX [Suspect]
     Active Substance: EFTRENONACOG ALFA
     Dosage: 2900 U,(+/-10%) QW (AS NEEDED FOR BLEEDING EVENTS FOR UPTO 2)
     Route: 042

REACTIONS (6)
  - Head injury [Unknown]
  - Traumatic haemorrhage [Unknown]
  - Tooth socket haemorrhage [Recovered/Resolved]
  - Gingival bleeding [Unknown]
  - Tooth loss [Unknown]
  - Extra dose administered [Unknown]

NARRATIVE: CASE EVENT DATE: 20240404
